FAERS Safety Report 6317088-3 (Version None)
Quarter: 2009Q3

REPORT INFORMATION
  Report Type: 
  Country: None (occurrence: None)
  Receive Date: 20090820
  Receipt Date: 20090813
  Transmission Date: 20100115
  Serious: Yes (Hospitalization)
  Sender: FDA-Public Use
  Company Number: KR-SANOFI-SYNTHELABO-F01200900793

PATIENT
  Sex: Male
  Weight: 60.4 kg

DRUGS (22)
  1. FUROSEMIDE [Concomitant]
     Dosage: UNK
  2. CIPROFLOXACIN [Concomitant]
     Dosage: UNK
  3. GRANISETRON HCL [Concomitant]
     Dosage: UNK
  4. VANCOMYCIN [Concomitant]
     Dosage: UNK
  5. MORPHINE HCL ELIXIR [Concomitant]
     Dosage: UNK
  6. TRAMADOL [Concomitant]
     Dosage: UNK
  7. ACETAMINOPHEN [Concomitant]
     Dosage: UNK
  8. CODEINE [Concomitant]
     Dosage: UNK
  9. AUGMENTIN (R) [Concomitant]
     Dosage: UNK
  10. LORAZEPAM [Concomitant]
     Dosage: UNK
  11. RANITIDINE [Concomitant]
     Dosage: UNK
  12. CHLORPHENIRAMINE MALEATE [Concomitant]
     Dosage: UNK
  13. DIAZEPAM [Concomitant]
     Dosage: UNK
  14. SUCRALFATE [Concomitant]
     Dosage: UNK
  15. RAMOSETRON HCL [Concomitant]
     Dosage: UNK
  16. CEFEPIME [Concomitant]
     Dosage: UNK
  17. METOCLOPRAMIDE [Concomitant]
     Dosage: UNK
  18. MG OXIDE [Concomitant]
     Dosage: UNK
  19. ALFUZOSIN HCL [Concomitant]
     Dosage: UNK
  20. LEUCOVORIN CALCIUM [Suspect]
     Route: 041
     Dates: start: 20080428, end: 20080428
  21. FLUOROURACIL [Suspect]
     Dosage: 400 MG/M2 IV BOLUS FOLLOWED BY 1200 MG/M2 VIA INTRAVENOUS INFUSION
     Route: 042
     Dates: start: 20080428, end: 20080428
  22. OXALIPLATIN [Suspect]
     Indication: COLON CANCER
     Route: 041
     Dates: start: 20080428, end: 20080428

REACTIONS (1)
  - HYPERCALCAEMIA [None]
